FAERS Safety Report 5816125-X (Version None)
Quarter: 2008Q3

REPORT INFORMATION
  Report Type: 
  Country: None (occurrence: None)
  Receive Date: 20080717
  Receipt Date: 20080717
  Transmission Date: 20090109
  Serious: No
  Sender: FDA-Public Use
  Company Number: None

PATIENT
  Age: 26 Year
  Sex: Male

DRUGS (1)
  1. PPD PURIFIED PROTEIN DERIVATIVE TB [Suspect]
     Dosage: IN LEFT FOREARM 1 DOSE
     Dates: start: 20080618

REACTIONS (4)
  - ERYTHEMA [None]
  - RASH MACULAR [None]
  - SKIN WARM [None]
  - TENDERNESS [None]
